FAERS Safety Report 8994922 (Version 1)
Quarter: 2013Q1

REPORT INFORMATION
  Report Type: Spontaneous
  Country: US (occurrence: US)
  Receive Date: 20130102
  Receipt Date: 20130102
  Transmission Date: 20140127
  Serious: No
  Sender: FDA-Public Use
  Company Number: US-AMGEN-USASP2012074429

PATIENT
  Age: 75 Year
  Sex: Female
  Weight: 56.23 kg

DRUGS (7)
  1. ENBREL [Suspect]
     Indication: PSORIATIC ARTHROPATHY
     Dosage: 50 MG, QWK
     Route: 058
     Dates: start: 20121025
  2. PRAVASTATIN [Concomitant]
     Indication: BLOOD CHOLESTEROL
     Dosage: 40 MG, HS, UNK
     Route: 048
  3. AMLODIPINE [Concomitant]
     Indication: HYPERTENSION
     Dosage: 5 MG, QD
     Route: 048
  4. CLONIDINE [Concomitant]
     Indication: HYPERTENSION
     Dosage: 0.1 MG, TID
     Route: 048
  5. PLAVIX [Concomitant]
     Indication: PERIPHERAL VASCULAR DISORDER
     Dosage: 75 MG, QD
     Route: 048
  6. EVISTA [Concomitant]
     Indication: OSTEOPOROSIS
     Dosage: 60 MG, QD
     Route: 048
  7. OMEPRAZOLE [Concomitant]
     Indication: REFLUX GASTRITIS
     Dosage: 20 MG, BID
     Route: 048

REACTIONS (4)
  - Arthralgia [Not Recovered/Not Resolved]
  - Injection site reaction [Unknown]
  - Injection site erythema [Recovered/Resolved]
  - Psoriasis [Not Recovered/Not Resolved]
